FAERS Safety Report 17123940 (Version 3)
Quarter: 2019Q4

REPORT INFORMATION
  Report Type: Spontaneous
  Country: US (occurrence: US)
  Receive Date: 20191206
  Receipt Date: 20191226
  Transmission Date: 20200122
  Serious: Yes (Hospitalization)
  Sender: FDA-Public Use
  Company Number: US-ACTELION-A-NJ2019-198832

PATIENT
  Sex: Female

DRUGS (1)
  1. TRACLEER [Suspect]
     Active Substance: BOSENTAN
     Indication: PULMONARY HYPERTENSION
     Dosage: 2 ML, BID
     Route: 048
     Dates: start: 20190310

REACTIONS (3)
  - Respiratory distress [Recovered/Resolved]
  - Acute respiratory failure [Recovered/Resolved]
  - Hypoxia [Recovered/Resolved]
